FAERS Safety Report 8923414 (Version 1)
Quarter: 2012Q4

REPORT INFORMATION
  Report Type: 
  Country: FR (occurrence: FR)
  Receive Date: 20121123
  Receipt Date: 20121123
  Transmission Date: 20130627
  Serious: Yes (Hospitalization, Other)
  Sender: FDA-Public Use
  Company Number: FR-JNJFOC-20121110585

PATIENT
  Sex: Male
  Weight: 102 kg

DRUGS (11)
  1. XARELTO [Suspect]
     Indication: CEREBROVASCULAR ACCIDENT PROPHYLAXIS
     Route: 048
     Dates: start: 20121016, end: 20121024
  2. XARELTO [Suspect]
     Indication: ATRIAL FIBRILLATION
     Route: 048
     Dates: start: 20121016, end: 20121024
  3. BACTRIUM DS [Concomitant]
     Route: 048
  4. SPECIAFOLDINE [Concomitant]
     Route: 065
  5. CORDARONE [Concomitant]
     Indication: TACHYARRHYTHMIA
     Route: 048
  6. CORDARONE [Concomitant]
     Indication: TACHYARRHYTHMIA
     Route: 048
  7. INEXIUM [Concomitant]
     Route: 064
  8. BISOPROLOL [Concomitant]
     Route: 065
  9. LASILIX [Concomitant]
     Indication: HYPERTENSION
     Route: 048
  10. DASATINIB [Concomitant]
     Indication: LEUKAEMIA RECURRENT
     Route: 065
     Dates: start: 201210
  11. ZELITREX [Concomitant]
     Route: 065

REACTIONS (4)
  - Drug eruption [Unknown]
  - Acute generalised exanthematous pustulosis [Unknown]
  - Distributive shock [Unknown]
  - Pyrexia [Unknown]
